FAERS Safety Report 4393403-5 (Version None)
Quarter: 2004Q3

REPORT INFORMATION
  Report Type: 
  Country: None (occurrence: None)
  Receive Date: 20040707
  Receipt Date: 20040707
  Transmission Date: 20050211
  Serious: Yes (Hospitalization)
  Sender: FDA-Public Use
  Company Number: None

PATIENT
  Age: 29 Year
  Sex: Male
  Weight: 93.4 kg

DRUGS (2)
  1. IRON DEXTRAN [Suspect]
     Indication: IRON DEFICIENCY ANAEMIA
     Dosage: 25 MG ONCE INTRAVENOUS
     Route: 042
     Dates: start: 20040609, end: 20040609
  2. VENOFER [Suspect]
     Indication: IRON DEFICIENCY ANAEMIA
     Dosage: 100 MG ONCE INTRAVENOUS
     Route: 042
     Dates: start: 20040610, end: 20040610

REACTIONS (2)
  - CHEST DISCOMFORT [None]
  - RASH [None]
